FAERS Safety Report 6091015-9 (Version None)
Quarter: 2009Q1

REPORT INFORMATION
  Report Type: 
  Country: None (occurrence: None)
  Receive Date: 20090219
  Receipt Date: 20090219
  Transmission Date: 20090719
  Serious: Yes (Life-Threatening)
  Sender: FDA-Public Use
  Company Number: None

PATIENT
  Age: 21 Year
  Sex: Male
  Weight: 70.3075 kg

DRUGS (1)
  1. AMBIEN [Suspect]
     Indication: INSOMNIA
     Dosage: 10 MG HS, PRN PO 05/22/2008 - SUMMER 2008
     Route: 048
     Dates: start: 20080522, end: 20080101

REACTIONS (1)
  - SUICIDAL IDEATION [None]
